FAERS Safety Report 13265908 (Version 4)
Quarter: 2017Q1

REPORT INFORMATION
  Report Type: Report from Study
  Country: US (occurrence: US)
  Receive Date: 20170223
  Receipt Date: 20170328
  Transmission Date: 20170428
  Serious: Yes (Other)
  Sender: FDA-Public Use
  Company Number: US-GILEAD-2017-0259227

PATIENT
  Age: 31 Year
  Sex: Female

DRUGS (15)
  1. AMBRISENTAN [Suspect]
     Active Substance: AMBRISENTAN
     Indication: PORTOPULMONARY HYPERTENSION
     Dosage: 10 MG, QD
     Route: 048
  2. LASIX [Concomitant]
     Active Substance: FUROSEMIDE
  3. OXYCODONE [Suspect]
     Active Substance: OXYCODONE
     Indication: PRODUCT USED FOR UNKNOWN INDICATION
     Dosage: 10 MG, UNK
     Route: 065
  4. PREDNISONE. [Concomitant]
     Active Substance: PREDNISONE
  5. ESCITALOPRAM [Concomitant]
     Active Substance: ESCITALOPRAM OXALATE
  6. COREG [Concomitant]
     Active Substance: CARVEDILOL
  7. LORATADINE. [Concomitant]
     Active Substance: LORATADINE
  8. CELECOXIB. [Concomitant]
     Active Substance: CELECOXIB
  9. AMBRISENTAN [Suspect]
     Active Substance: AMBRISENTAN
     Indication: HEPATIC CIRRHOSIS
  10. ORENITRAM [Concomitant]
     Active Substance: TREPROSTINIL
  11. ZYPREXA [Concomitant]
     Active Substance: OLANZAPINE
  12. XANAX [Concomitant]
     Active Substance: ALPRAZOLAM
  13. VERAPAMIL [Concomitant]
     Active Substance: VERAPAMIL HYDROCHLORIDE
  14. VESICARE [Concomitant]
     Active Substance: SOLIFENACIN SUCCINATE
  15. FLUTICASONE. [Concomitant]
     Active Substance: FLUTICASONE

REACTIONS (8)
  - Head injury [Recovered/Resolved]
  - Concussion [Recovered/Resolved]
  - Loss of consciousness [Unknown]
  - Road traffic accident [Not Recovered/Not Resolved]
  - Overdose [Unknown]
  - Seizure [Unknown]
  - Malaise [Recovered/Resolved]
  - Unevaluable event [Unknown]

NARRATIVE: CASE EVENT DATE: 20170217
